FAERS Safety Report 9227649 (Version 1)
Quarter: 2013Q2

REPORT INFORMATION
  Report Type: Spontaneous
  Country: US (occurrence: None)
  Receive Date: 20130411
  Receipt Date: 20130411
  Transmission Date: 20140414
  Serious: No
  Sender: FDA-Public Use
  Company Number: None

PATIENT
  Age: 71 Year
  Sex: Male

DRUGS (1)
  1. XELODA [Suspect]
     Indication: HEPATIC CANCER
     Route: 048
     Dates: start: 20120601, end: 20130310

REACTIONS (5)
  - Palmar-plantar erythrodysaesthesia syndrome [None]
  - Local swelling [None]
  - Pain [None]
  - Skin fissures [None]
  - Pain in extremity [None]
